FAERS Safety Report 9603181 (Version 2)
Quarter: 2013Q4

REPORT INFORMATION
  Report Type: Spontaneous
  Country: CA (occurrence: CA)
  Receive Date: 20131007
  Receipt Date: 20131018
  Transmission Date: 20140711
  Serious: Yes (Other)
  Sender: FDA-Public Use
  Company Number: CA-PFIZER INC-2013283539

PATIENT
  Age: 12 Year
  Sex: Female

DRUGS (1)
  1. ZOLOFT [Suspect]
     Indication: ANXIETY DISORDER DUE TO A GENERAL MEDICAL CONDITION
     Dosage: 25 MG, 1X/DAY
     Dates: start: 2012, end: 20130923

REACTIONS (8)
  - Drug withdrawal syndrome [Not Recovered/Not Resolved]
  - Paraesthesia [Not Recovered/Not Resolved]
  - Mood swings [Not Recovered/Not Resolved]
  - Dizziness [Not Recovered/Not Resolved]
  - Tremor [Not Recovered/Not Resolved]
  - Insomnia [Not Recovered/Not Resolved]
  - Psychomotor hyperactivity [Not Recovered/Not Resolved]
  - Off label use [Recovered/Resolved]
